FAERS Safety Report 5468155-8 (Version None)
Quarter: 2007Q3

REPORT INFORMATION
  Report Type: 
  Country: None (occurrence: None)
  Receive Date: 20070926
  Receipt Date: 20070912
  Transmission Date: 20080115
  Serious: Yes (Hospitalization)
  Sender: FDA-Public Use
  Company Number: CA-ELI_LILLY_AND_COMPANY-CA200709002554

PATIENT
  Age: 61 Year
  Sex: Female

DRUGS (10)
  1. FORTEO [Suspect]
     Indication: OSTEOPOROSIS
     Dosage: 20 UG, DAILY (1/D)
     Route: 058
     Dates: start: 20061005, end: 20070903
  2. COUMADIN [Concomitant]
  3. FLUVOXAMINE MALEATE [Concomitant]
  4. NOVO-METOPROL [Concomitant]
  5. RATIO-OXYCOCET [Concomitant]
  6. MELOXICAM [Concomitant]
  7. PMS-HYDROMORPHONE [Concomitant]
  8. SYNTHROID [Concomitant]
  9. DURAGESIC-100 [Concomitant]
     Route: 062
  10. GRAVOL TAB [Concomitant]
     Dosage: UNK, AS NEEDED

REACTIONS (6)
  - ASTHENIA [None]
  - BLOOD CALCIUM INCREASED [None]
  - COLITIS [None]
  - CROHN'S DISEASE [None]
  - FALL [None]
  - NAUSEA [None]
